FAERS Safety Report 14972850 (Version 1)
Quarter: 2018Q2

REPORT INFORMATION
  Report Type: Spontaneous
  Country: JP (occurrence: JP)
  Receive Date: 20180605
  Receipt Date: 20180605
  Transmission Date: 20180711
  Serious: Yes (Death, Other)
  Sender: FDA-Public Use
  Company Number: JP-ROCHE-2038371

PATIENT
  Age: 49 Year
  Sex: Female
  Weight: 53 kg

DRUGS (7)
  1. AVASTIN [Suspect]
     Active Substance: BEVACIZUMAB
     Indication: OVARIAN CANCER
     Dosage: DOSAGE IS UNCERTAIN.
     Route: 041
     Dates: start: 20171114, end: 20171114
  2. CARBOPLATIN. [Concomitant]
     Active Substance: CARBOPLATIN
     Indication: OVARIAN CANCER
     Dosage: DOSAGE IS UNCERTAIN.
     Route: 041
  3. DOXIL [Concomitant]
     Active Substance: DOXORUBICIN HYDROCHLORIDE
     Indication: OVARIAN CANCER
     Dosage: DOSE INTERVAL UNCERTAINTY
     Route: 041
     Dates: start: 20171114, end: 20171114
  4. CARBOPLATIN. [Concomitant]
     Active Substance: CARBOPLATIN
     Route: 065
     Dates: start: 20170815, end: 20171013
  5. PACLITAXEL. [Concomitant]
     Active Substance: PACLITAXEL
     Route: 065
     Dates: start: 20170815, end: 20171013
  6. PACLITAXEL. [Concomitant]
     Active Substance: PACLITAXEL
     Indication: OVARIAN CANCER
     Dosage: DOSAGE IS UNCERTAIN.
     Route: 041
  7. DECADRON [Concomitant]
     Active Substance: DEXAMETHASONE
     Dosage: DOSE INTERVAL UNCERTAINTY
     Route: 041
     Dates: start: 20171114, end: 20171114

REACTIONS (6)
  - Cerebrovascular accident [Fatal]
  - Disease progression [Fatal]
  - Catheter site haematoma [Unknown]
  - Trousseau^s syndrome [Unknown]
  - Lipid metabolism disorder [Unknown]
  - Cerebral infarction [Fatal]

NARRATIVE: CASE EVENT DATE: 20171127
